FAERS Safety Report 13609669 (Version 1)
Quarter: 2017Q2

REPORT INFORMATION
  Report Type: Spontaneous
  Country: JP (occurrence: JP)
  Receive Date: 20170602
  Receipt Date: 20170602
  Transmission Date: 20170830
  Serious: Yes (Other)
  Sender: FDA-Public Use
  Company Number: JP-HQ SPECIALTY-JP-2017INT000185

PATIENT

DRUGS (2)
  1. CISPLATIN. [Suspect]
     Active Substance: CISPLATIN
     Indication: GLOTTIS CARCINOMA
     Dosage: 6 MG/M2, FIVE TIMES PER WEEK
  2. DOCETAXEL. [Suspect]
     Active Substance: DOCETAXEL
     Indication: GLOTTIS CARCINOMA
     Dosage: 10 MG/M2, ONCE WEEKLY

REACTIONS (2)
  - Dermatitis [Unknown]
  - Laryngeal necrosis [Recovered/Resolved]
